FAERS Safety Report 21992737 (Version 1)
Quarter: 2023Q1

REPORT INFORMATION
  Report Type: Spontaneous
  Country: US (occurrence: US)
  Receive Date: 20230215
  Receipt Date: 20230215
  Transmission Date: 20230417
  Serious: No
  Sender: FDA-Public Use
  Company Number: US-PERRIGO-22US010329

PATIENT
  Age: 40 Year
  Sex: Female

DRUGS (6)
  1. OMEPRAZOLE [Suspect]
     Active Substance: OMEPRAZOLE
     Indication: Dyspepsia
     Dosage: 20 MG, BID 2 SEPARATED DOSES
     Route: 048
     Dates: start: 20220723, end: 20220727
  2. HYDROCHLOROTHIAZIDE [Concomitant]
     Active Substance: HYDROCHLOROTHIAZIDE
     Indication: Hypertension
     Dosage: UNK
     Route: 065
     Dates: start: 202205
  3. MYLANTA ORIGINAL [Concomitant]
     Indication: Dyspepsia
     Dosage: UNK
     Route: 065
     Dates: start: 20220725
  4. TYLENOL [Concomitant]
     Active Substance: ACETAMINOPHEN
     Indication: Pain
     Dosage: UNK
     Route: 065
     Dates: start: 20220722
  5. SUCRALFATE [Concomitant]
     Active Substance: SUCRALFATE
     Indication: Dyspepsia
     Dosage: UNKNOWN, QID
     Route: 065
     Dates: start: 20220722
  6. PREDNISONE [Concomitant]
     Active Substance: PREDNISONE
     Indication: Arthropod sting
     Dosage: UNK
     Route: 065
     Dates: start: 20220717, end: 20220721

REACTIONS (3)
  - Urticaria [Not Recovered/Not Resolved]
  - Pruritus [Recovering/Resolving]
  - Inappropriate schedule of product administration [Unknown]

NARRATIVE: CASE EVENT DATE: 20220723
